FAERS Safety Report 9560647 (Version 1)
Quarter: 2013Q3

REPORT INFORMATION
  Report Type: Spontaneous
  Country: GB (occurrence: GB)
  Receive Date: 20130927
  Receipt Date: 20130927
  Transmission Date: 20140515
  Serious: Yes (Other)
  Sender: FDA-Public Use
  Company Number: GB-MERCK-1309GBR009978

PATIENT
  Age: 55 Year
  Sex: Female

DRUGS (4)
  1. RIBAVIRIN [Suspect]
     Indication: HEPATITIS C
     Dosage: UNK DF, BID
     Route: 048
     Dates: start: 20130115
  2. RIBAVIRIN [Suspect]
     Dosage: UNK UNK, QD
     Route: 048
  3. INTERFERON (UNSPECIFIED) [Suspect]
     Indication: HEPATITIS C
     Dosage: 1 DF, QW
     Route: 058
     Dates: start: 20130115
  4. TELAPREVIR [Suspect]
     Indication: HEPATITIS C
     Dosage: 750 MG, TID
     Route: 048
     Dates: start: 20130115

REACTIONS (9)
  - Cough [Not Recovered/Not Resolved]
  - Vaginal haemorrhage [Unknown]
  - Fatigue [Not Recovered/Not Resolved]
  - Dizziness [Not Recovered/Not Resolved]
  - Malaise [Not Recovered/Not Resolved]
  - Vomiting [Not Recovered/Not Resolved]
  - Decreased appetite [Not Recovered/Not Resolved]
  - Lethargy [Unknown]
  - Paraesthesia [Unknown]
